FAERS Safety Report 9633130 (Version 2)
Quarter: 2013Q4

REPORT INFORMATION
  Report Type: Spontaneous
  Country: DE (occurrence: DE)
  Receive Date: 20131019
  Receipt Date: 20131019
  Transmission Date: 20140711
  Serious: Yes (Hospitalization, Other)
  Sender: FDA-Public Use
  Company Number: DE-ABBVIE-13P-062-1116389-00

PATIENT
  Sex: Female
  Weight: 57 kg

DRUGS (1)
  1. HUMIRA [Suspect]
     Indication: CROHN^S DISEASE
     Route: 058
     Dates: start: 201204

REACTIONS (6)
  - Fistula [Unknown]
  - Bacterial pyelonephritis [Unknown]
  - Urinary tract infection [Unknown]
  - Drug ineffective [Unknown]
  - Anal fistula [Unknown]
  - Anal abscess [Unknown]
